FAERS Safety Report 24714732 (Version 1)
Quarter: 2024Q4

REPORT INFORMATION
  Report Type: Spontaneous
  Country: GB (occurrence: GB)
  Receive Date: 20241210
  Receipt Date: 20241210
  Transmission Date: 20250114
  Serious: Yes (Disabling, Other)
  Sender: NOVO NORDISK
  Company Number: GB-MHRA-TPP17818228C9235755YC1732896013055

PATIENT
  Age: 55 Year
  Sex: Female
  Weight: 65 kg

DRUGS (11)
  1. RYBELSUS [Suspect]
     Active Substance: SEMAGLUTIDE
     Indication: Ill-defined disorder
     Dosage: 3 MG
     Dates: start: 20241101
  2. RYBELSUS [Concomitant]
     Active Substance: SEMAGLUTIDE
     Indication: Ill-defined disorder
     Dosage: UNK, TAKE ONE TABLET ONCE DAILY WITH A SIP OF WATER AND 30MINS BEFORE ANY OTHER FOOD/DRINK/MEDICATIO
     Dates: start: 20241113
  3. AMITRIPTYLINE HYDROCHLORIDE [Concomitant]
     Active Substance: AMITRIPTYLINE HYDROCHLORIDE
     Indication: Ill-defined disorder
     Dosage: UNK, TAKE ONE AT NIGHT FOR 3 DAYS  THEN CAN GO UP  T...
     Dates: start: 20241107
  4. COCODAMOL [Concomitant]
     Active Substance: ACETAMINOPHEN\CODEINE PHOSPHATE
     Indication: Ill-defined disorder
     Dosage: UNK, TAKE ONE OR TWO TABLETS UP TO FOUR TIMES A DAY,...
     Dates: start: 20241107
  5. FERROUS SULFATE [Concomitant]
     Active Substance: FERROUS SULFATE
     Indication: Ill-defined disorder
     Dosage: UNK, TAKE ONE TABLET ONCE DAILY (ENSURE TAKE AT LEAS...
     Dates: start: 20240327, end: 20241121
  6. ATORVASTATIN [Concomitant]
     Active Substance: ATORVASTATIN
     Indication: Ill-defined disorder
     Dosage: UNK, TAKE ONE IN THE EVENING TO LOWER CHOLESTEROL LE...
     Dates: start: 20240501
  7. EMPAGLIFLOZIN [Concomitant]
     Active Substance: EMPAGLIFLOZIN
     Indication: Ill-defined disorder
     Dosage: UNK, TAKE ONE DAILY FOR 3 MONTHS, THEN BLOOD TES AND...
     Dates: start: 20240501
  8. LEVOTHYROXINE [Concomitant]
     Active Substance: LEVOTHYROXINE
     Indication: Ill-defined disorder
     Dosage: UNK, TAKE ONE DAILY
     Dates: start: 20240501
  9. METFORMIN [Concomitant]
     Active Substance: METFORMIN HYDROCHLORIDE
     Indication: Ill-defined disorder
     Dosage: UNK, TAKE 2 TABLETS TWICE DAILY
     Dates: start: 20240501
  10. VENLAFAXINE [Concomitant]
     Active Substance: VENLAFAXINE HYDROCHLORIDE
     Indication: Ill-defined disorder
     Dosage: UNK, TAKE ONE DAILY
     Dates: start: 20240501
  11. QUETIAPINE [Concomitant]
     Active Substance: QUETIAPINE
     Indication: Ill-defined disorder
     Dosage: UNK, TAKE AT BEDTIME
     Dates: start: 20240821

REACTIONS (4)
  - Urinary retention [Recovered/Resolved]
  - Hallucination [Unknown]
  - Peripheral swelling [Unknown]
  - Nausea [Unknown]

NARRATIVE: CASE EVENT DATE: 20241101
